FAERS Safety Report 8480029-7 (Version None)
Quarter: 2012Q2

REPORT INFORMATION
  Report Type: 
  Country: None (occurrence: None)
  Receive Date: 20120629
  Receipt Date: 20120621
  Transmission Date: 20120825
  Serious: Yes (Other)
  Sender: FDA-Public Use
  Company Number: CA-UCBSA-058545

PATIENT
  Age: 52 Year
  Sex: Female
  Weight: 69.18 kg

DRUGS (9)
  1. CIMZIA [Suspect]
     Route: 058
     Dates: start: 20120418, end: 20120516
  2. TRAMADOL HCL [Concomitant]
     Indication: ANALGESIC THERAPY
     Dosage: DOSE PER INTAKE: I-II ; NO OF INTAKES:Q4-6H
     Route: 048
  3. CIMZIA [Suspect]
     Indication: RHEUMATOID ARTHRITIS
     Route: 058
     Dates: start: 20120530, end: 20120101
  4. FOLIC ACID [Concomitant]
     Indication: SUPPLEMENTATION THERAPY
     Route: 048
     Dates: start: 20110601
  5. METHOTREXATE [Concomitant]
     Indication: RHEUMATOID ARTHRITIS
     Route: 058
     Dates: start: 20110501
  6. TYLENOL ES [Concomitant]
     Indication: ANALGESIC THERAPY
     Dosage: DOSE PER INTAKE: I-II ; NO OF INTAKES:Q4-6H
     Route: 048
  7. PANTALOC [Concomitant]
     Indication: PROPHYLAXIS
     Route: 048
  8. SYNTHROID [Concomitant]
     Indication: HYPERTHYROIDISM
     Route: 048
  9. LEVOTHYROXINE SODIUM [Concomitant]

REACTIONS (3)
  - RASH [None]
  - HERPES SIMPLEX [None]
  - INFECTION [None]
